FAERS Safety Report 8068485-X (Version None)
Quarter: 2012Q1

REPORT INFORMATION
  Report Type: 
  Country: None (occurrence: None)
  Receive Date: 20120124
  Receipt Date: 20111101
  Transmission Date: 20120608
  Serious: No
  Sender: FDA-Public Use
  Company Number: US-AMGEN-USASP2011057066

PATIENT
  Sex: Female

DRUGS (7)
  1. ATENOLOL [Concomitant]
  2. PROLIA [Suspect]
     Indication: BONE LOSS
     Dosage: UNK UNK, Q6MO
     Dates: start: 20110101
  3. LASIX [Concomitant]
  4. NABUMETONE [Concomitant]
  5. SIMVASTATIN [Concomitant]
  6. GUAIFENESIN [Concomitant]
  7. PANTOPRAZOLE [Concomitant]

REACTIONS (2)
  - ARTHRALGIA [None]
  - PAIN IN EXTREMITY [None]
